FAERS Safety Report 21027675 (Version 1)
Quarter: 2022Q2

REPORT INFORMATION
  Report Type: Spontaneous
  Country: CA (occurrence: None)
  Receive Date: 20220630
  Receipt Date: 20220630
  Transmission Date: 20220721
  Serious: Yes (Hospitalization)
  Sender: FDA-Public Use
  Company Number: CA-ROCHE-3123520

PATIENT
  Age: 75 Year
  Sex: Male
  Weight: 72 kg

DRUGS (13)
  1. BEVACIZUMAB [Suspect]
     Active Substance: BEVACIZUMAB
     Indication: Hereditary haemorrhagic telangiectasia
     Route: 065
  2. BEVACIZUMAB [Suspect]
     Active Substance: BEVACIZUMAB
     Indication: Haemorrhage
  3. BEVACIZUMAB [Suspect]
     Active Substance: BEVACIZUMAB
     Indication: Anaemia
  4. RAMIPRIL [Concomitant]
     Active Substance: RAMIPRIL
  5. FERROUS FUMARATE [Concomitant]
     Active Substance: FERROUS FUMARATE
     Dosage: DRUG DOSE FIRST ADMINISTERED IS 300.0 MILLIGRAM
     Route: 048
  6. NITROGLYCERIN [Concomitant]
     Active Substance: NITROGLYCERIN
     Dosage: DRUG DOSE FIRST ADMINISTERED IS 1.0 DOSAGE FORMS
     Route: 060
  7. ROSUVASTATIN CALCIUM [Concomitant]
     Active Substance: ROSUVASTATIN CALCIUM
     Dosage: DRUG DOSE FIRST ADMINISTERED IS 20.0 MILLIGRAM
     Route: 048
  8. CYANOCOBALAMIN [Concomitant]
     Active Substance: CYANOCOBALAMIN
     Dosage: DRUG DOSE FIRST ADMINISTERED IS 400.0 MILLIGRAM
     Route: 048
  9. RISEDRONATE SODIUM [Concomitant]
     Active Substance: RISEDRONATE SODIUM
     Dosage: DRUG DOSE FIRST ADMINISTERED IS 35.0 MILLIGRAM
     Route: 048
  10. BISOPROLOL [Concomitant]
     Active Substance: BISOPROLOL
     Dosage: DRUG DOSE FIRST ADMINISTERED IS NOT PROVIDED
     Route: 048
  11. OMEPRAZOLE [Concomitant]
     Active Substance: OMEPRAZOLE
     Dosage: DRUG DOSE FIRST ADMINISTERED IS 20.0 MILLIGRAM
     Route: 048
  12. VITAMIN D3 [Concomitant]
     Active Substance: CHOLECALCIFEROL
     Route: 048
  13. APIXABAN [Concomitant]
     Active Substance: APIXABAN
     Dosage: DRUG DOSE FIRST ADMINISTERED IS 50.0 MILLIGRAM
     Route: 048

REACTIONS (6)
  - Brain abscess [Unknown]
  - Epistaxis [Unknown]
  - Weight increased [Unknown]
  - Blood pressure systolic increased [Unknown]
  - Arteriovenous malformation [Unknown]
  - Weight decreased [Unknown]
